FAERS Safety Report 19618095 (Version 1)
Quarter: 2021Q3

REPORT INFORMATION
  Report Type: Spontaneous
  Country: PL (occurrence: PL)
  Receive Date: 20210728
  Receipt Date: 20210728
  Transmission Date: 20211014
  Serious: Yes (Other)
  Sender: FDA-Public Use
  Company Number: NVSC2021PL158681

PATIENT
  Age: 60 Year
  Sex: Female

DRUGS (2)
  1. KISQALI [Suspect]
     Active Substance: RIBOCICLIB
     Indication: BREAST CANCER
     Dosage: 600 MG, QD (FOR 21 DAYS/ THEN 7 DAYS BREAK)
     Route: 065
     Dates: start: 202102
  2. KISQALI [Suspect]
     Active Substance: RIBOCICLIB
     Dosage: 300 MG, QD
     Route: 065
     Dates: start: 202103

REACTIONS (7)
  - Metastases to liver [Unknown]
  - Interstitial lung disease [Unknown]
  - Renal impairment [Unknown]
  - Diarrhoea [Unknown]
  - Breast cancer [Unknown]
  - Malignant neoplasm progression [Unknown]
  - Urinary retention [Unknown]

NARRATIVE: CASE EVENT DATE: 202102
